FAERS Safety Report 5385948-6 (Version None)
Quarter: 2007Q3

REPORT INFORMATION
  Report Type: 
  Country: None (occurrence: None)
  Receive Date: 20070710
  Receipt Date: 20070622
  Transmission Date: 20080115
  Serious: Yes (Hospitalization)
  Sender: FDA-Public Use
  Company Number: 20070622

PATIENT
  Age: 30 Year
  Sex: Male

DRUGS (1)
  1. ALINIA [Suspect]
     Dosage: 2 G/DAY 047
     Dates: start: 20060512, end: 20070328

REACTIONS (1)
  - HEPATITIS [None]
